FAERS Safety Report 13616409 (Version 1)
Quarter: 2017Q2

REPORT INFORMATION
  Report Type: Spontaneous
  Country: US (occurrence: US)
  Receive Date: 20170606
  Receipt Date: 20170606
  Transmission Date: 20170830
  Serious: No
  Sender: FDA-Public Use
  Company Number: US-SA-2016SA172148

PATIENT
  Age: 67 Year
  Sex: Female

DRUGS (1)
  1. LANTUS [Suspect]
     Active Substance: INSULIN GLARGINE
     Indication: DIABETES MELLITUS
     Dosage: DOSE:80 UNIT(S)
     Route: 065
     Dates: start: 1996

REACTIONS (6)
  - Fall [Unknown]
  - Tremor [Unknown]
  - Head injury [Unknown]
  - Nervous system disorder [Unknown]
  - Hyperglycaemia [Recovering/Resolving]
  - Fatigue [Unknown]
